FAERS Safety Report 5453679-X (Version None)
Quarter: 2007Q3

REPORT INFORMATION
  Report Type: 
  Country: None (occurrence: None)
  Receive Date: 20070917
  Receipt Date: 20070906
  Transmission Date: 20080115
  Serious: Yes (Hospitalization)
  Sender: FDA-Public Use
  Company Number: AT-AVENTIS-200717868GDDC

PATIENT
  Age: 63 Year
  Sex: Female

DRUGS (12)
  1. DOCETAXEL [Suspect]
     Route: 042
     Dates: start: 20070329, end: 20070419
  2. CISPLATIN [Suspect]
     Route: 042
     Dates: start: 20070329, end: 20070330
  3. CISPLATIN [Suspect]
     Route: 042
     Dates: start: 20070419, end: 20070420
  4. CETUXIMAB [Suspect]
     Route: 042
     Dates: start: 20070329, end: 20070329
  5. CETUXIMAB [Suspect]
     Route: 042
     Dates: start: 20070405, end: 20070405
  6. CETUXIMAB [Suspect]
     Route: 042
     Dates: start: 20070412, end: 20070412
  7. CETUXIMAB [Suspect]
     Route: 042
     Dates: start: 20070419, end: 20070419
  8. CETUXIMAB [Suspect]
     Route: 042
     Dates: start: 20070426, end: 20070426
  9. CETUXIMAB [Suspect]
     Dosage: DOSE: UNK
     Dates: start: 20070503, end: 20070503
  10. LOSEC                              /00661201/ [Concomitant]
     Dates: start: 20000101
  11. LISINOPRIL [Concomitant]
     Dates: start: 20070313, end: 20070426
  12. LEGALON [Concomitant]
     Dates: start: 20070313, end: 20070330

REACTIONS (5)
  - ELECTROLYTE IMBALANCE [None]
  - HYPOCALCAEMIA [None]
  - HYPOKALAEMIA [None]
  - HYPOMAGNESAEMIA [None]
  - VOMITING [None]
